FAERS Safety Report 5704384-3 (Version None)
Quarter: 2008Q2

REPORT INFORMATION
  Report Type: 
  Country: None (occurrence: None)
  Receive Date: 20080414
  Receipt Date: 20080403
  Transmission Date: 20081010
  Serious: Yes (Life-Threatening, Hospitalization)
  Sender: FDA-Public Use
  Company Number: A0722439A

PATIENT
  Age: 45 Year
  Sex: Male

DRUGS (1)
  1. RYTHMOL [Suspect]
     Indication: DRUG USE FOR UNKNOWN INDICATION
     Route: 065

REACTIONS (6)
  - ARRHYTHMIA [None]
  - ATRIAL FIBRILLATION [None]
  - ATRIAL FLUTTER [None]
  - HAEMODYNAMIC INSTABILITY [None]
  - HEART RATE IRREGULAR [None]
  - TACHYCARDIA [None]
